FAERS Safety Report 9638302 (Version 1)
Quarter: 2013Q4

REPORT INFORMATION
  Report Type: Spontaneous
  Country: US (occurrence: None)
  Receive Date: 20131021
  Receipt Date: 20131021
  Transmission Date: 20140711
  Serious: No
  Sender: FDA-Public Use
  Company Number: None

PATIENT
  Sex: Female

DRUGS (2)
  1. RIBAPAK [Suspect]
     Indication: HEPATITIS C
     Dosage: 400 MG, TWICE A DAY, BY MOUTH
     Route: 048
     Dates: start: 201308, end: 201310
  2. INCIVEK [Suspect]
     Indication: HEPATITIS C
     Dates: start: 201308, end: 201310

REACTIONS (1)
  - Psoriasis [None]
